FAERS Safety Report 20502805 (Version 3)
Quarter: 2022Q1

REPORT INFORMATION
  Report Type: Spontaneous
  Country: TR (occurrence: TR)
  Receive Date: 20220222
  Receipt Date: 20220309
  Transmission Date: 20220424
  Serious: Yes (Death, Other)
  Sender: FDA-Public Use
  Company Number: TR-GILEAD-2022-0570522

PATIENT
  Age: 45 Year
  Sex: Male

DRUGS (1)
  1. GENVOYA [Suspect]
     Active Substance: COBICISTAT\ELVITEGRAVIR\EMTRICITABINE\TENOFOVIR ALAFENAMIDE FUMARATE
     Indication: HIV infection
     Dosage: UNK
     Route: 065
     Dates: start: 201910

REACTIONS (3)
  - Hodgkin^s disease [Fatal]
  - Respiratory moniliasis [Recovering/Resolving]
  - Oral fungal infection [Unknown]

NARRATIVE: CASE EVENT DATE: 20191201
